FAERS Safety Report 5125891-0 (Version None)
Quarter: 2006Q4

REPORT INFORMATION
  Report Type: 
  Country: None (occurrence: None)
  Receive Date: 20061012
  Receipt Date: 20060926
  Transmission Date: 20070319
  Serious: No
  Sender: FDA-Public Use
  Company Number: KR-GLAXOSMITHKLINE-B0440263A

PATIENT
  Age: 3 Year
  Sex: Female

DRUGS (1)
  1. FLIXOTIDE EVOHALER [Suspect]
     Indication: ASTHMA
     Route: 055
     Dates: start: 20060825

REACTIONS (2)
  - TOOTH DISCOLOURATION [None]
  - TOOTH DISORDER [None]
